FAERS Safety Report 23673153 (Version 6)
Quarter: 2024Q4

REPORT INFORMATION
  Report Type: Spontaneous
  Country: US (occurrence: US)
  Receive Date: 20240326
  Receipt Date: 20241008
  Transmission Date: 20250115
  Serious: Yes (Other)
  Sender: IPSEN
  Company Number: US-IPSEN Group, Research and Development-2024-04759

PATIENT
  Age: 42 Year
  Sex: Female
  Weight: 110.99 kg

DRUGS (15)
  1. SOMATULINE DEPOT [Suspect]
     Active Substance: LANREOTIDE ACETATE
     Indication: Acromegaly
     Dosage: UNDER THE SKIN
     Route: 058
  2. SOMAVERT [Concomitant]
     Active Substance: PEGVISOMANT
  3. CRESTOR [Concomitant]
     Active Substance: ROSUVASTATIN CALCIUM
  4. TYLENOL [Concomitant]
     Active Substance: ACETAMINOPHEN
  5. MIRALAX [Concomitant]
     Active Substance: POLYETHYLENE GLYCOL 3350
  6. CYCLOBENZAPRINE [Concomitant]
     Active Substance: CYCLOBENZAPRINE
  7. DICYCLOMINE [Concomitant]
     Active Substance: DICYCLOMINE HYDROCHLORIDE
  8. VITAMIN D NOS [Concomitant]
     Active Substance: CHOLECALCIFEROL\ERGOCALCIFEROL
  9. DIAZEPAM [Concomitant]
     Active Substance: DIAZEPAM
  10. OXYCODONE [Concomitant]
     Active Substance: OXYCODONE
  11. ACETAMINOPHEN/PERCOSET [Concomitant]
  12. OXICOTIN [Concomitant]
  13. ONDANSETRON [Concomitant]
     Active Substance: ONDANSETRON
  14. HYDROCORTISONE [Concomitant]
     Active Substance: HYDROCORTISONE
  15. FIBER THERAPY (CALCIUM POLYCARBOPHIL) [Concomitant]
     Active Substance: CALCIUM POLYCARBOPHIL

REACTIONS (8)
  - Hysterectomy [Unknown]
  - Insulin resistant diabetes [Unknown]
  - Bradycardia [Unknown]
  - Cholelithiasis [Recovered/Resolved]
  - Stress [Unknown]
  - Tachycardia [Unknown]
  - Diverticulum intestinal [Unknown]
  - Peripheral swelling [Unknown]

NARRATIVE: CASE EVENT DATE: 20190101
